FAERS Safety Report 20536891 (Version 1)
Quarter: 2022Q1

REPORT INFORMATION
  Report Type: Spontaneous
  Country: FR (occurrence: FR)
  Receive Date: 20220302
  Receipt Date: 20220302
  Transmission Date: 20220423
  Serious: Yes (Other)
  Sender: FDA-Public Use
  Company Number: FR-Zentiva-2022-ZT-001911

PATIENT
  Age: 75 Year
  Sex: Female

DRUGS (2)
  1. LOCOID [Suspect]
     Active Substance: HYDROCORTISONE BUTYRATE
     Indication: Rash
     Dosage: FLUID EMULSION FOR LOCAL APPLICATION
     Route: 003
     Dates: start: 20220210
  2. KETOCONAZOLE [Suspect]
     Active Substance: KETOCONAZOLE
     Indication: Rash
     Dosage: KETOCONAZOLE ZENTIVA, GEL IN SACHET-DOSE
     Route: 003
     Dates: start: 20220211, end: 20220212

REACTIONS (5)
  - Face oedema [Recovering/Resolving]
  - Eye oedema [Recovering/Resolving]
  - Pruritus [Recovering/Resolving]
  - Skin irritation [Recovering/Resolving]
  - Intentional product use issue [Recovered/Resolved]

NARRATIVE: CASE EVENT DATE: 20220212
